FAERS Safety Report 23882927 (Version 2)
Quarter: 2024Q2

REPORT INFORMATION
  Report Type: Spontaneous
  Country: US (occurrence: US)
  Receive Date: 20240522
  Receipt Date: 20240527
  Transmission Date: 20240716
  Serious: Yes (Life-Threatening, Hospitalization, Other)
  Sender: FDA-Public Use
  Company Number: US-009507513-2405USA005056

PATIENT
  Sex: Male

DRUGS (1)
  1. KEYTRUDA [Suspect]
     Active Substance: PEMBROLIZUMAB
     Indication: Renal cell carcinoma

REACTIONS (5)
  - Malaise [Unknown]
  - Cardiac pacemaker insertion [Unknown]
  - Carditis [Unknown]
  - Ill-defined disorder [Unknown]
  - Hepatic enzyme increased [Unknown]
